FAERS Safety Report 6810840-7 (Version None)
Quarter: 2010Q2

REPORT INFORMATION
  Report Type: 
  Country: None (occurrence: None)
  Receive Date: 20100630
  Receipt Date: 20080402
  Transmission Date: 20101027
  Serious: No
  Sender: FDA-Public Use
  Company Number: US-PFIZER INC-2008029525

PATIENT
  Sex: Male
  Weight: 97.727 kg

DRUGS (5)
  1. NICOTROL [Suspect]
     Indication: SMOKING CESSATION THERAPY
     Dates: start: 20060801
  2. CARDIAC THERAPY [Concomitant]
  3. DRUG, UNSPECIFIED [Concomitant]
     Indication: THYROID DISORDER
  4. ANTIHYPERTENSIVES [Concomitant]
  5. OTHER RESPIRATORY SYSTEM PRODUCTS [Concomitant]

REACTIONS (1)
  - TOBACCO USER [None]
